FAERS Safety Report 6911212-7 (Version None)
Quarter: 2010Q3

REPORT INFORMATION
  Report Type: 
  Country: None (occurrence: None)
  Receive Date: 20100806
  Receipt Date: 20100727
  Transmission Date: 20110219
  Serious: Yes (Hospitalization, Other)
  Sender: FDA-Public Use
  Company Number: BR-ABBOTT-10P-020-0660420-00

PATIENT
  Sex: Female
  Weight: 67 kg

DRUGS (17)
  1. HUMIRA [Suspect]
     Indication: RHEUMATOID ARTHRITIS
     Route: 058
     Dates: start: 20100611
  2. HUMIRA [Suspect]
  3. AMLODIPINE [Concomitant]
     Indication: HYPERTENSION
     Route: 048
  4. ATEOLOL [Concomitant]
     Indication: HYPERTENSION
     Route: 048
  5. METHOTREXATE [Concomitant]
     Indication: RHEUMATOID ARTHRITIS
     Route: 048
  6. SODIUM ALENDRONATE [Concomitant]
     Indication: OSTEOPOROSIS
     Route: 048
  7. AMITRIPTYLINE HYDROCHLORIDE [Concomitant]
     Indication: DEPRESSION
     Route: 048
  8. NOVOLIN [Concomitant]
     Indication: DIABETES MELLITUS
  9. NOVOLIN [Concomitant]
  10. CALCIUM CARBONATE [Concomitant]
     Indication: OSTEOPOROSIS
     Route: 048
  11. DIVALPROEX SODIUM [Concomitant]
     Indication: DEPRESSION
     Route: 048
  12. DEFLAZACORT [Concomitant]
     Indication: RHEUMATOID ARTHRITIS
     Route: 048
  13. AGARICUS BLAZEI (COGUMELO DO SOL) [Concomitant]
     Indication: VITAMIN SUPPLEMENTATION
     Route: 048
  14. CLONAZEPAM [Concomitant]
     Indication: INSOMNIA
     Route: 048
  15. OMEPRAZOLE [Concomitant]
     Indication: PROPHYLAXIS
     Route: 048
  16. OMEPRAZOLE [Concomitant]
     Indication: GASTRIC DISORDER
  17. OMEGA-9 FATTY ACIDS AND OMEGA-3 FATTY ACIDS (FOREVER ARCTIC) [Concomitant]
     Indication: PRODUCT USED FOR UNKNOWN INDICATION
     Route: 048

REACTIONS (5)
  - ABDOMINAL PAIN [None]
  - GASTROINTESTINAL PAIN [None]
  - INTESTINAL POLYP [None]
  - INTESTINAL RESECTION [None]
  - LIVER DISORDER [None]
